FAERS Safety Report 20753849 (Version 1)
Quarter: 2022Q2

REPORT INFORMATION
  Report Type: Spontaneous
  Country: US (occurrence: None)
  Receive Date: 20220426
  Receipt Date: 20220426
  Transmission Date: 20220721
  Serious: No
  Sender: FDA-Public Use
  Company Number: US-ROCHE-2829725

PATIENT
  Age: 78 Year
  Sex: Male

DRUGS (2)
  1. ESBRIET [Suspect]
     Active Substance: PIRFENIDONE
     Indication: Idiopathic pulmonary fibrosis
     Route: 048
     Dates: start: 20210113
  2. ESBRIET [Suspect]
     Active Substance: PIRFENIDONE
     Route: 048
     Dates: start: 20210120

REACTIONS (8)
  - Photosensitivity reaction [Not Recovered/Not Resolved]
  - Sunburn [Unknown]
  - Insomnia [Recovered/Resolved]
  - Pruritus [Recovering/Resolving]
  - Peripheral swelling [Unknown]
  - Pain in extremity [Unknown]
  - Saliva altered [Unknown]
  - Excessive cerumen production [Unknown]

NARRATIVE: CASE EVENT DATE: 20210401
